FAERS Safety Report 16664857 (Version 1)
Quarter: 2019Q3

REPORT INFORMATION
  Report Type: Spontaneous
  Country: US (occurrence: US)
  Receive Date: 20190803
  Receipt Date: 20190803
  Transmission Date: 20191004
  Serious: Yes (Other)
  Sender: FDA-Public Use
  Company Number: US-ACCORD-069132

PATIENT
  Age: 47 Year
  Sex: Female
  Weight: 54.43 kg

DRUGS (13)
  1. OMEPRAZOLE. [Concomitant]
     Active Substance: OMEPRAZOLE
  2. AROMASIN [Concomitant]
     Active Substance: EXEMESTANE
  3. DOCETAXEL ACCORD [Suspect]
     Active Substance: DOCETAXEL
     Indication: BREAST CANCER METASTATIC
     Dates: start: 20130122, end: 20130513
  4. CYTOXAN [Suspect]
     Active Substance: CYCLOPHOSPHAMIDE
     Indication: BREAST CANCER METASTATIC
     Dates: start: 20130122, end: 20130513
  5. ERGOCALCIFEROL. [Concomitant]
     Active Substance: ERGOCALCIFEROL
  6. XGEVA [Concomitant]
     Active Substance: DENOSUMAB
  7. DEXAMETHASONE. [Concomitant]
     Active Substance: DEXAMETHASONE
  8. AFINITOR [Concomitant]
     Active Substance: EVEROLIMUS
  9. TRAMADOL. [Concomitant]
     Active Substance: TRAMADOL
  10. POTASSIUM [Concomitant]
     Active Substance: POTASSIUM
  11. KEFLEX [Concomitant]
     Active Substance: CEPHALEXIN
  12. ALOXI [Concomitant]
     Active Substance: PALONOSETRON HYDROCHLORIDE
  13. LASIX [Concomitant]
     Active Substance: FUROSEMIDE

REACTIONS (1)
  - Alopecia [Not Recovered/Not Resolved]

NARRATIVE: CASE EVENT DATE: 2015
